FAERS Safety Report 15262997 (Version 1)
Quarter: 2018Q3

REPORT INFORMATION
  Report Type: Spontaneous
  Country: US (occurrence: US)
  Receive Date: 20180810
  Receipt Date: 20180810
  Transmission Date: 20181010
  Serious: No
  Sender: FDA-Public Use
  Company Number: US-SHIRE-US201830897

PATIENT
  Sex: Male
  Weight: 96.15 kg

DRUGS (2)
  1. KALBITOR [Concomitant]
     Active Substance: ECALLANTIDE
     Indication: PRODUCT USED FOR UNKNOWN INDICATION
  2. FIRAZYR [Suspect]
     Active Substance: ICATIBANT ACETATE
     Indication: HEREDITARY ANGIOEDEMA
     Dosage: UNK
     Route: 065
     Dates: start: 201801

REACTIONS (3)
  - Adverse event [Unknown]
  - Hereditary angioedema [Unknown]
  - Drug ineffective [Unknown]
